FAERS Safety Report 15196044 (Version 2)
Quarter: 2018Q4

REPORT INFORMATION
  Report Type: Spontaneous
  Country: JP (occurrence: JP)
  Receive Date: 20180725
  Receipt Date: 20181203
  Transmission Date: 20190204
  Serious: Yes (Other)
  Sender: FDA-Public Use
  Company Number: JP-BAYER-2018-136782

PATIENT
  Age: 77 Year
  Sex: Male

DRUGS (2)
  1. XOFIGO [Suspect]
     Active Substance: RADIUM RA-223 DICHLORIDE
     Indication: HORMONE-REFRACTORY PROSTATE CANCER
  2. XOFIGO [Suspect]
     Active Substance: RADIUM RA-223 DICHLORIDE
     Indication: METASTASES TO BONE
     Dosage: 2.9 MBQ, Q1MON
     Route: 042
     Dates: start: 20180620, end: 20180725

REACTIONS (3)
  - Haemoglobin decreased [Recovering/Resolving]
  - Hormone-refractory prostate cancer [None]
  - Anaemia [Recovering/Resolving]

NARRATIVE: CASE EVENT DATE: 20180620
